FAERS Safety Report 23531641 (Version 2)
Quarter: 2024Q3

REPORT INFORMATION
  Report Type: Spontaneous
  Country: GB (occurrence: GB)
  Receive Date: 20240216
  Receipt Date: 20240904
  Transmission Date: 20241016
  Serious: Yes (Hospitalization, Other)
  Sender: STRIDES
  Company Number: None

PATIENT

DRUGS (6)
  1. IBUPROFEN [Suspect]
     Active Substance: IBUPROFEN
     Indication: Arthralgia
     Dosage: UNK (INTERMITTENTLY SELF-MEDICATING FOR SEVERAL YEARS)
     Route: 065
  2. IBUPROFEN [Suspect]
     Active Substance: IBUPROFEN
     Indication: Back pain
  3. AZATHIOPRINE [Suspect]
     Active Substance: AZATHIOPRINE
     Indication: Crohn^s disease
     Dosage: UNK
     Route: 065
  4. CODEINE [Suspect]
     Active Substance: CODEINE
     Indication: Arthralgia
     Dosage: UNK (INTERMITTENTLY SELF-MEDICATING FOR SEVERAL YEARS)
     Route: 065
  5. CODEINE [Suspect]
     Active Substance: CODEINE
     Indication: Back pain
  6. INFLIXIMAB [Suspect]
     Active Substance: INFLIXIMAB
     Indication: Crohn^s disease
     Dosage: UNK
     Route: 065

REACTIONS (4)
  - Intestinal diaphragm disease [Recovered/Resolved]
  - Iron deficiency anaemia [Recovered/Resolved]
  - Self-medication [Recovered/Resolved]
  - Therapy non-responder [Unknown]
